FAERS Safety Report 8884743 (Version 1)
Quarter: 2012Q4

REPORT INFORMATION
  Report Type: Report from Study
  Country: GB (occurrence: GB)
  Receive Date: 20121105
  Receipt Date: 20121105
  Transmission Date: 20130627
  Serious: Yes (Disabling, Other)
  Sender: FDA-Public Use
  Company Number: GB-AMGEN-GBRCT2012069890

PATIENT
  Age: 15 Year
  Sex: Male
  Weight: 64.2 kg

DRUGS (11)
  1. ETANERCEPT [Suspect]
     Indication: PRODUCT USED FOR UNKNOWN INDICATION
     Dosage: 25 mg, 2 times/wk
     Route: 058
     Dates: start: 20120514
  2. CYCLIZINE [Concomitant]
     Dosage: 50 mg, 3x/day
     Route: 048
     Dates: start: 20120801
  3. ONDANSETRON [Concomitant]
     Dosage: 8 mg, 2x/day
     Route: 048
     Dates: start: 20120701
  4. METHYLPREDNISOLONE [Concomitant]
     Dosage: 1 g, 3x/day
     Route: 042
     Dates: start: 20120701
  5. MOVICOL                            /01625101/ [Concomitant]
     Dosage: 2 sachets daily
     Route: 048
     Dates: start: 20120701
  6. IBUPROFEN [Concomitant]
     Dosage: 400 mg, 3x/day
     Route: 048
     Dates: start: 20120514
  7. IBUPROFEN [Concomitant]
     Dosage: 400 mg, 4x/day
     Route: 048
     Dates: start: 20120701
  8. TRIAMCINOLONE HEXACETONIDE [Concomitant]
     Dosage: UNK
     Dates: start: 20120601
  9. TRAMADOL [Concomitant]
     Dosage: 2 tablets at night
     Dates: start: 20120514
  10. METHOTREXATE [Concomitant]
     Dosage: 20 mg, weekly
     Route: 058
     Dates: start: 20120301
  11. METHOTREXATE [Concomitant]
     Dosage: UNK
     Route: 048

REACTIONS (2)
  - Nausea [Not Recovered/Not Resolved]
  - Juvenile idiopathic arthritis [Not Recovered/Not Resolved]
